FAERS Safety Report 6906278-4 (Version None)
Quarter: 2010Q3

REPORT INFORMATION
  Report Type: 
  Country: None (occurrence: None)
  Receive Date: 20100804
  Receipt Date: 20100802
  Transmission Date: 20110219
  Serious: Yes (Death)
  Sender: FDA-Public Use
  Company Number: DE-CEPHALON-2010004061

PATIENT
  Sex: Male

DRUGS (1)
  1. ACTIQ [Suspect]
     Route: 002

REACTIONS (1)
  - MALIGNANT NEOPLASM PROGRESSION [None]
